FAERS Safety Report 5220825-2 (Version None)
Quarter: 2007Q1

REPORT INFORMATION
  Report Type: 
  Country: None (occurrence: None)
  Receive Date: 20070126
  Receipt Date: 20070122
  Transmission Date: 20070707
  Serious: Yes (Hospitalization)
  Sender: FDA-Public Use
  Company Number: FR-BRISTOL-MYERS SQUIBB COMPANY-13653662

PATIENT
  Age: 32 Year
  Sex: Male

DRUGS (9)
  1. VIDEX [Suspect]
     Indication: ACQUIRED IMMUNODEFICIENCY SYNDROME
     Route: 048
     Dates: start: 20061130, end: 20061206
  2. TRUVADA [Suspect]
     Indication: ACQUIRED IMMUNODEFICIENCY SYNDROME
     Dosage: THERAPY INTERRUPTED ON 04-DEC-2006, RESTARTED ON 12-DEC-2006
     Route: 048
     Dates: start: 20061130, end: 20061214
  3. KIVEXA [Suspect]
     Route: 048
     Dates: start: 20061204, end: 20061206
  4. COMBIVIR [Suspect]
     Route: 048
     Dates: start: 20061215, end: 20061228
  5. BACTRIM [Concomitant]
     Dates: start: 20061124, end: 20061204
  6. KALETRA [Concomitant]
     Dosage: THERAPY INTERRUPTED ON 06-DEC-2006 AND RESTARTED ON 28-DEC-2006
     Dates: start: 20061130
  7. WELLVONE [Concomitant]
     Dates: start: 20061204
  8. INVIRASE [Concomitant]
     Dates: start: 20061212
  9. NORVIR [Concomitant]
     Dates: start: 20061212, end: 20061228

REACTIONS (3)
  - HEADACHE [None]
  - HYPERSENSITIVITY [None]
  - PYREXIA [None]
